FAERS Safety Report 9276331 (Version 1)
Quarter: 2013Q2

REPORT INFORMATION
  Report Type: Spontaneous
  Country: US (occurrence: None)
  Receive Date: 20130502
  Receipt Date: 20130502
  Transmission Date: 20140414
  Serious: Yes (Disabling)
  Sender: FDA-Public Use
  Company Number: None

PATIENT
  Age: 51 Year
  Sex: Female

DRUGS (1)
  1. SIMVASTATIN [Suspect]
     Indication: CEREBROVASCULAR ACCIDENT
     Route: 048
     Dates: start: 20110210, end: 20120131

REACTIONS (6)
  - Nerve injury [None]
  - Myalgia [None]
  - Fatigue [None]
  - Constipation [None]
  - Weight increased [None]
  - Faeces discoloured [None]
